FAERS Safety Report 15884436 (Version 4)
Quarter: 2022Q1

REPORT INFORMATION
  Report Type: Spontaneous
  Country: CZ (occurrence: CZ)
  Receive Date: 20190129
  Receipt Date: 20220105
  Transmission Date: 20220423
  Serious: Yes (Life-Threatening, Other)
  Sender: FDA-Public Use
  Company Number: CZ-TEVA-2018-CZ-926624

PATIENT
  Age: 61 Year
  Sex: Female

DRUGS (11)
  1. PREDNISONE [Suspect]
     Active Substance: PREDNISONE
     Indication: Liver transplant
     Dosage: UNK UNK, UNKNOWN FREQ.
  2. PREDNISONE [Suspect]
     Active Substance: PREDNISONE
     Indication: Immunosuppression
     Dosage: 20 MILLIGRAM
     Dates: start: 2013
  3. TACROLIMUS [Suspect]
     Active Substance: TACROLIMUS
     Indication: Immunosuppressant drug therapy
     Dosage: UNK UNK, UNKNOWN FREQ.
     Dates: start: 2013
  4. TACROLIMUS [Suspect]
     Active Substance: TACROLIMUS
     Indication: Liver transplant
  5. LEVEMIR [Concomitant]
     Active Substance: INSULIN DETEMIR
     Indication: Type 2 diabetes mellitus
     Dosage: 20 UNITS, UNKNOWN FREQ.
  6. LEVEMIR [Concomitant]
     Active Substance: INSULIN DETEMIR
     Dosage: 1, UNK, QD (16 UNITS IN THE MORNING)
  7. LEVEMIR [Concomitant]
     Active Substance: INSULIN DETEMIR
     Dosage: 16 INTERNATIONAL UNIT, QD (MORNING)
  8. HUMULIN R [Concomitant]
     Active Substance: INSULIN HUMAN
     Indication: Type 2 diabetes mellitus
     Dosage: 16 INTERNATIONAL UNIT, TID
  9. HUMULIN R [Concomitant]
     Active Substance: INSULIN HUMAN
     Dosage: UNK UNK, UNKNOWN FREQ.
  10. INSULIN LISPRO [Concomitant]
     Active Substance: INSULIN LISPRO
     Indication: Type 2 diabetes mellitus
     Dosage: (IL 200) 24-24-24 U, UNKNOWN FREQ.UNK
     Dates: start: 201711
  11. INSULIN LISPRO [Concomitant]
     Active Substance: INSULIN LISPRO
     Dosage: 100 U/ML (IL 100) AT 20-20-20 U DOSES UNK

REACTIONS (9)
  - Nephrotic syndrome [Unknown]
  - Proteinuria [Recovered/Resolved]
  - Renal failure [Unknown]
  - Toxicity to various agents [Unknown]
  - Liver transplant rejection [Unknown]
  - Hypoglycaemia [Unknown]
  - Insulin resistance [Unknown]
  - Weight increased [Unknown]
  - Increased insulin requirement [Unknown]

NARRATIVE: CASE EVENT DATE: 20130101
